FAERS Safety Report 13946128 (Version 1)
Quarter: 2017Q3

REPORT INFORMATION
  Report Type: Report from Study
  Country: US (occurrence: US)
  Receive Date: 20170907
  Receipt Date: 20170907
  Transmission Date: 20171128
  Serious: Yes (Hospitalization)
  Sender: FDA-Public Use
  Company Number: US-EISAI MEDICAL RESEARCH-EC-2017-026761

PATIENT
  Sex: Male

DRUGS (3)
  1. AFINITOR [Concomitant]
     Active Substance: EVEROLIMUS
  2. LENVIMA [Suspect]
     Active Substance: LENVATINIB
     Route: 048
     Dates: start: 2017
  3. LENVIMA [Suspect]
     Active Substance: LENVATINIB
     Indication: RENAL CANCER
     Route: 048
     Dates: start: 20170330, end: 2017

REACTIONS (18)
  - Platelet count decreased [Unknown]
  - Chest pain [Recovering/Resolving]
  - Epistaxis [Recovering/Resolving]
  - Throat irritation [Recovering/Resolving]
  - Dysphonia [Not Recovered/Not Resolved]
  - Asthenia [Unknown]
  - Chills [Recovering/Resolving]
  - Contusion [Recovering/Resolving]
  - Headache [Unknown]
  - Amnesia [Unknown]
  - Stomatitis [Recovering/Resolving]
  - Diarrhoea [Unknown]
  - Pain in extremity [Recovering/Resolving]
  - Anaemia [Unknown]
  - Haemoptysis [Unknown]
  - Abdominal pain upper [Recovering/Resolving]
  - Skin atrophy [Recovering/Resolving]
  - Cough [Not Recovered/Not Resolved]

NARRATIVE: CASE EVENT DATE: 2017
